FAERS Safety Report 24269926 (Version 2)
Quarter: 2024Q3

REPORT INFORMATION
  Report Type: Report from Study
  Country: JP (occurrence: JP)
  Receive Date: 20240830
  Receipt Date: 20240926
  Transmission Date: 20241016
  Serious: Yes (Hospitalization)
  Sender: EISAI
  Company Number: JP-Eisai-202406533_LEQ_P_1

PATIENT
  Age: 77 Year
  Sex: Male
  Weight: 53.7 kg

DRUGS (4)
  1. LEQEMBI [Suspect]
     Active Substance: LECANEMAB-IRMB
     Indication: Dementia Alzheimer^s type
     Route: 041
     Dates: start: 20240815, end: 20240815
  2. LEQEMBI [Suspect]
     Active Substance: LECANEMAB-IRMB
     Route: 041
     Dates: start: 20240905, end: 20240905
  3. LEQEMBI [Suspect]
     Active Substance: LECANEMAB-IRMB
     Route: 041
     Dates: start: 20240919
  4. PRASUGREL HYDROCHLORIDE [Concomitant]
     Active Substance: PRASUGREL HYDROCHLORIDE

REACTIONS (2)
  - Infusion related reaction [Recovered/Resolved]
  - C-reactive protein increased [Unknown]

NARRATIVE: CASE EVENT DATE: 20240815
